FAERS Safety Report 17313879 (Version 1)
Quarter: 2020Q1

REPORT INFORMATION
  Report Type: Spontaneous
  Country: FR (occurrence: FR)
  Receive Date: 20200124
  Receipt Date: 20200124
  Transmission Date: 20200409
  Serious: Yes (Congenital Anomaly)
  Sender: FDA-Public Use
  Company Number: FR-SUN PHARMACEUTICAL INDUSTRIES LTD-2020RR-234213

PATIENT
  Age: 1 Day
  Sex: Female
  Weight: 1.66 kg

DRUGS (1)
  1. ZOLPIDEM [Suspect]
     Active Substance: ZOLPIDEM TARTRATE
     Indication: DEPRESSION
     Dosage: 300 MILLIGRAM, DAILY
     Route: 064

REACTIONS (3)
  - Premature baby [Not Recovered/Not Resolved]
  - Respiratory distress [Recovered/Resolved]
  - Periventricular leukomalacia [Not Recovered/Not Resolved]

NARRATIVE: CASE EVENT DATE: 20191025
